FAERS Safety Report 8242375-1 (Version None)
Quarter: 2012Q1

REPORT INFORMATION
  Report Type: 
  Country: None (occurrence: None)
  Receive Date: 20120329
  Receipt Date: 20120125
  Transmission Date: 20120608
  Serious: Yes (Other)
  Sender: FDA-Public Use
  Company Number: US-BAYER-2012-018331

PATIENT
  Sex: Female

DRUGS (2)
  1. MIRENA [Suspect]
     Indication: CONTRACEPTION
     Dosage: 20 MCG/24HR, CONT
     Dates: start: 20111122, end: 20120109
  2. MIRENA [Suspect]
     Indication: MENORRHAGIA

REACTIONS (3)
  - DEVICE DISLOCATION [None]
  - POST PROCEDURAL HAEMORRHAGE [None]
  - MENORRHAGIA [None]
